FAERS Safety Report 7793840-2 (Version None)
Quarter: 2011Q4

REPORT INFORMATION
  Report Type: 
  Country: None (occurrence: None)
  Receive Date: 20111004
  Receipt Date: 20110921
  Transmission Date: 20120403
  Serious: Yes (Disabling)
  Sender: FDA-Public Use
  Company Number: DE-RANBAXY-2011RR-48475

PATIENT
  Age: 41 Year
  Sex: Male
  Weight: 76 kg

DRUGS (1)
  1. GABAPENTIN [Suspect]
     Indication: INTERVERTEBRAL DISC INJURY
     Dosage: 400 MG, TID
     Route: 048
     Dates: start: 20110119

REACTIONS (6)
  - ANXIETY [None]
  - DIZZINESS [None]
  - DEPRESSION [None]
  - SLEEP DISORDER [None]
  - SUICIDAL IDEATION [None]
  - ERECTILE DYSFUNCTION [None]
